FAERS Safety Report 6353092-7 (Version None)
Quarter: 2009Q3

REPORT INFORMATION
  Report Type: 
  Country: None (occurrence: None)
  Receive Date: 20090912
  Receipt Date: 20090622
  Transmission Date: 20100115
  Serious: No
  Sender: FDA-Public Use
  Company Number: US-ABBOTT-08P-163-0453349-00

PATIENT
  Sex: Male
  Weight: 72.64 kg

DRUGS (5)
  1. HUMIRA [Suspect]
     Indication: CROHN'S DISEASE
     Route: 050
     Dates: start: 20080520
  2. HUMIRA [Suspect]
     Indication: OSTEOARTHRITIS
  3. CELECOXIB [Concomitant]
     Indication: PAIN
     Route: 048
     Dates: start: 20070401
  4. UNKNOWN PAIN MEDICATIONS [Concomitant]
     Indication: PAIN
     Route: 048
  5. SOME ^OXY^ [Concomitant]
     Indication: PAIN
     Route: 048
     Dates: start: 20080401

REACTIONS (2)
  - DRUG DELIVERY SYSTEM MALFUNCTION [None]
  - INCORRECT DOSE ADMINISTERED [None]
